FAERS Safety Report 13115914 (Version 2)
Quarter: 2017Q1

REPORT INFORMATION
  Report Type: Spontaneous
  Country: US (occurrence: US)
  Receive Date: 20170115
  Receipt Date: 20170122
  Transmission Date: 20170428
  Serious: Yes (Hospitalization)
  Sender: FDA-Public Use
  Company Number: US-ROCHE-1879679

PATIENT
  Age: 81 Year
  Sex: Male
  Weight: 70.4 kg

DRUGS (9)
  1. L-CITRULLINE [Concomitant]
     Active Substance: CITRULLINE
     Route: 048
  2. RED YEAST RICE [Concomitant]
     Active Substance: DIETARY SUPPLEMENT
     Indication: HYPERCHOLESTEROLAEMIA
     Route: 048
     Dates: start: 2016
  3. LACTOBACILLUS ACIDOPHILUS [Concomitant]
     Active Substance: LACTOBACILLUS ACIDOPHILUS
     Route: 048
  4. PENTOSTATIN. [Suspect]
     Active Substance: PENTOSTATIN
     Indication: HAIRY CELL LEUKAEMIA
     Dosage: 1 TIME DOSE
     Route: 042
     Dates: start: 20161122, end: 20161122
  5. ADVIL PM [Concomitant]
     Active Substance: DIPHENHYDRAMINE CITRATE\IBUPROFEN
     Route: 048
  6. MUCINEX [Concomitant]
     Active Substance: GUAIFENESIN
     Route: 048
  7. SAW PALMETTO [Concomitant]
     Active Substance: SAW PALMETTO
     Indication: BENIGN PROSTATIC HYPERPLASIA
     Route: 048
     Dates: start: 2016
  8. VALTREX [Concomitant]
     Active Substance: VALACYCLOVIR HYDROCHLORIDE
     Route: 048
     Dates: start: 2016
  9. RITUXAN [Suspect]
     Active Substance: RITUXIMAB
     Indication: HAIRY CELL LEUKAEMIA
     Dosage: 1 TIME DOSE
     Route: 042
     Dates: start: 20161122, end: 20161122

REACTIONS (4)
  - Pyrexia [Recovered/Resolved]
  - Cough [Unknown]
  - Upper respiratory tract infection [Recovered/Resolved]
  - Body temperature increased [Unknown]

NARRATIVE: CASE EVENT DATE: 20170108
